FAERS Safety Report 14632377 (Version 1)
Quarter: 2018Q1

REPORT INFORMATION
  Report Type: Report from Study
  Country: None (occurrence: RO)
  Receive Date: 20180313
  Receipt Date: 20180313
  Transmission Date: 20180509
  Serious: Yes (Hospitalization)
  Sender: FDA-Public Use
  Company Number: RO-ABBVIE-18S-135-2281165-00

PATIENT
  Age: 70 Year
  Sex: Female

DRUGS (12)
  1. EXVIERA [Suspect]
     Active Substance: DASABUVIR
     Indication: HEPATIC CIRRHOSIS
     Route: 048
     Dates: start: 20170923, end: 20171220
  2. INSULIN [Concomitant]
     Active Substance: INSULIN NOS
     Indication: TYPE 1 DIABETES MELLITUS
     Route: 051
  3. VIEKIRAX [Suspect]
     Active Substance: OMBITASVIR\PARITAPREVIR\RITONAVIR
     Indication: HEPATIC CIRRHOSIS
     Route: 048
     Dates: start: 20170923, end: 20171220
  4. COAXIL [Concomitant]
     Active Substance: TIANEPTINE SODIUM
     Indication: PRODUCT USED FOR UNKNOWN INDICATION
     Dosage: 1/2 TB IN THE MORNING AND 1/2 TB IN THE EVENING
     Route: 048
     Dates: start: 201801
  5. MILGAMMA [Concomitant]
     Active Substance: VITAMIN B
     Indication: TYPE 1 DIABETES MELLITUS
     Route: 048
  6. SERETIDE [Concomitant]
     Active Substance: FLUTICASONE PROPIONATE\SALMETEROL XINAFOATE
     Indication: ASTHMA
     Route: 055
  7. ESSENTIALE [Concomitant]
     Indication: LIVER DISORDER
     Route: 048
     Dates: start: 201802
  8. SARGENOR [Concomitant]
     Indication: PRODUCT USED FOR UNKNOWN INDICATION
     Route: 048
  9. EXVIERA [Suspect]
     Active Substance: DASABUVIR
     Indication: HEPATITIS C
  10. VITAMAX [Concomitant]
     Indication: PRODUCT USED FOR UNKNOWN INDICATION
     Route: 048
  11. VIEKIRAX [Suspect]
     Active Substance: OMBITASVIR\PARITAPREVIR\RITONAVIR
     Indication: HEPATITIS C
  12. OMERAN [Concomitant]
     Indication: PROPHYLAXIS
     Route: 048

REACTIONS (2)
  - Pneumonia [Recovering/Resolving]
  - Respiratory failure [Not Recovered/Not Resolved]

NARRATIVE: CASE EVENT DATE: 20180115
